FAERS Safety Report 10200070 (Version 1)
Quarter: 2014Q2

REPORT INFORMATION
  Report Type: Spontaneous
  Country: US (occurrence: US)
  Receive Date: 20140527
  Receipt Date: 20140527
  Transmission Date: 20141212
  Serious: No
  Sender: FDA-Public Use
  Company Number: US-NOVEN-14US009236

PATIENT
  Age: 66 Year
  Sex: Female

DRUGS (7)
  1. DAYTRANA [Suspect]
     Indication: NERVOUS SYSTEM DISORDER
     Dosage: 20 MG, QD FOR 9 HOURS
     Route: 062
     Dates: start: 201401
  2. DAYTRANA [Suspect]
     Indication: BRAIN INJURY
  3. EFFEXOR [Concomitant]
     Indication: PRODUCT USED FOR UNKNOWN INDICATION
     Dosage: 100 MG, BID
     Route: 048
     Dates: start: 1999
  4. SPIRONOLACTONE [Concomitant]
     Indication: HYPERTENSION
     Dosage: 25 MG, QD
     Route: 048
  5. ASPIRIN [Concomitant]
     Indication: PRODUCT USED FOR UNKNOWN INDICATION
     Dosage: 80 MG, QD
     Route: 048
  6. ASTELIN                            /00085801/ [Concomitant]
     Indication: HYPERSENSITIVITY
     Dosage: 1 UNK, QD
     Route: 045
  7. FLONASE                            /00972202/ [Concomitant]
     Indication: HYPERSENSITIVITY
     Dosage: 2 UNK, QD
     Route: 045

REACTIONS (3)
  - Off label use [Not Recovered/Not Resolved]
  - Product quality issue [Not Recovered/Not Resolved]
  - No adverse event [None]
